FAERS Safety Report 7648640-0 (Version None)
Quarter: 2011Q3

REPORT INFORMATION
  Report Type: 
  Country: None (occurrence: None)
  Receive Date: 20110801
  Receipt Date: 20110720
  Transmission Date: 20111222
  Serious: Yes (Hospitalization, Other)
  Sender: FDA-Public Use
  Company Number: PHHO2010AR10105

PATIENT
  Sex: Male
  Weight: 66 kg

DRUGS (9)
  1. ENALAPRIL MALEATE [Suspect]
     Indication: CARDIAC FAILURE
     Dosage: CODE NOT BROKEN
     Route: 048
     Dates: start: 20091221
  2. FUROSEMIDE [Concomitant]
     Indication: CARDIAC FAILURE
     Dosage: 120 MG/DAY
     Dates: start: 20101111
  3. OMEPRAZOLE [Concomitant]
     Indication: GASTRITIS
     Dosage: 20 MG/DAY
     Dates: start: 20090601
  4. THIAZIDES [Concomitant]
     Indication: CARDIAC FAILURE
     Dosage: 50 MG/DAY
     Dates: start: 20110414
  5. BLINDED ALISKIREN [Suspect]
     Indication: CARDIAC FAILURE
     Dosage: CODE NOT BROKEN
     Route: 048
     Dates: start: 20091221
  6. CARVEDILOL [Concomitant]
     Indication: CARDIAC FAILURE
     Dosage: 12.5 MG/DAY
     Dates: start: 20100219
  7. SPIRONOLACTONE [Concomitant]
     Indication: CARDIAC FAILURE
     Dosage: 100 MG/DAY
     Dates: start: 20100108
  8. BLINDED NO TREATMENT RECEIVED [Suspect]
     Indication: CARDIAC FAILURE
     Dosage: CODE NOT BROKEN
     Route: 048
     Dates: start: 20091221
  9. AMLODIPINE [Concomitant]
     Indication: HYPERTENSION
     Dosage: 2.5 MG, BID
     Dates: start: 20100702

REACTIONS (14)
  - DYSPNOEA PAROXYSMAL NOCTURNAL [None]
  - OEDEMA PERIPHERAL [None]
  - DRUG INEFFECTIVE [None]
  - ORTHOPNOEA [None]
  - CORONARY ARTERY DISEASE [None]
  - VENOUS PRESSURE JUGULAR INCREASED [None]
  - HEPATOJUGULAR REFLUX [None]
  - CARDIAC FAILURE [None]
  - RALES [None]
  - PULMONARY OEDEMA [None]
  - DYSPNOEA EXERTIONAL [None]
  - DYSPNOEA AT REST [None]
  - CONCOMITANT DISEASE PROGRESSION [None]
  - DISEASE PROGRESSION [None]
